FAERS Safety Report 23388377 (Version 1)
Quarter: 2024Q1

REPORT INFORMATION
  Report Type: Spontaneous
  Country: KR (occurrence: KR)
  Receive Date: 20240110
  Receipt Date: 20240110
  Transmission Date: 20240410
  Serious: Yes (Other)
  Sender: FDA-Public Use
  Company Number: KR-009507513-2401KOR004712

PATIENT
  Age: 76 Year
  Sex: Male
  Weight: 66 kg

DRUGS (1)
  1. INVANZ [Suspect]
     Active Substance: ERTAPENEM SODIUM
     Indication: Infectious pleural effusion
     Dosage: 1 DOSAGE FORM, QD
     Route: 042
     Dates: start: 20171212, end: 20171214

REACTIONS (4)
  - Rash [Recovered/Resolved]
  - Oral mucosal eruption [Recovered/Resolved]
  - Dermatitis bullous [Recovered/Resolved]
  - Blood creatinine increased [Recovered/Resolved]

NARRATIVE: CASE EVENT DATE: 20171216
